FAERS Safety Report 13858042 (Version 1)
Quarter: 2017Q3

REPORT INFORMATION
  Report Type: Other
  Country: CN (occurrence: CN)
  Receive Date: 20170811
  Receipt Date: 20170811
  Transmission Date: 20171127
  Serious: Yes (Other)
  Sender: FDA-Public Use
  Company Number: CN-ASTELLAS-2017US031998

PATIENT
  Age: 91 Year
  Sex: Male

DRUGS (9)
  1. ISOSORBIDE MONONITRATE. [Concomitant]
     Active Substance: ISOSORBIDE MONONITRATE
     Indication: CORONARY ARTERY DILATATION
     Dosage: UNK UNK, UNKNOWN FREQ.
     Route: 065
  2. TYGACIL [Suspect]
     Active Substance: TIGECYCLINE
     Indication: LUNG INFECTION
     Route: 042
     Dates: start: 20170613, end: 20170626
  3. ATORVASTATIN [Concomitant]
     Active Substance: ATORVASTATIN
     Indication: ARTERIOSCLEROSIS
     Dosage: UNK UNK, UNKNOWN FREQ.
     Route: 065
  4. CLOPIDOGREL                        /01220704/ [Concomitant]
     Active Substance: CLOPIDOGREL BESILATE
     Indication: ANTIPLATELET THERAPY
     Dosage: UNK UNK, UNKNOWN FREQ.
     Route: 065
  5. TRIMETAZIDINE HYDROCHLORIDE [Concomitant]
     Active Substance: TRIMETAZIDINE DIHYDROCHLORIDE
     Indication: CORONARY ARTERY DILATATION
     Dosage: UNK UNK, UNKNOWN FREQ.
     Route: 065
  6. MICAFUNGIN [Suspect]
     Active Substance: MICAFUNGIN
     Indication: LUNG INFECTION
     Route: 042
     Dates: start: 20170609, end: 20170626
  7. IMIPENEM [Concomitant]
     Active Substance: IMIPENEM
     Indication: ANTI-INFECTIVE THERAPY
     Dosage: 0.5 G, THRICE DAILY
     Route: 042
  8. DONEPEZIL. [Concomitant]
     Active Substance: DONEPEZIL
     Indication: DEPRESSED LEVEL OF CONSCIOUSNESS
     Dosage: UNK UNK, UNKNOWN FREQ.
     Route: 065
  9. DOXOFYLLINE [Concomitant]
     Active Substance: DOXOFYLLINE
     Indication: ASTHMA
     Dosage: UNK UNK, UNKNOWN FREQ.
     Route: 065

REACTIONS (4)
  - Total bile acids increased [Unknown]
  - Liver function test abnormal [Unknown]
  - Blood bilirubin increased [Unknown]
  - Aspartate aminotransferase increased [Unknown]

NARRATIVE: CASE EVENT DATE: 20170624
